FAERS Safety Report 17035012 (Version 1)
Quarter: 2019Q4

REPORT INFORMATION
  Report Type: Spontaneous
  Country: GB (occurrence: GB)
  Receive Date: 20191115
  Receipt Date: 20191115
  Transmission Date: 20200122
  Serious: Yes (Other)
  Sender: FDA-Public Use
  Company Number: GB-TEVA-2019-GB-1137287

PATIENT
  Age: 58 Year
  Sex: Female
  Weight: 67.12 kg

DRUGS (3)
  1. TEVA UK GABAPENTIN [Suspect]
     Active Substance: GABAPENTIN
     Indication: POST VIRAL FATIGUE SYNDROME
     Dosage: VARIED OVER TIME 100MG AND 300MG IN VARIOUS COMBINATIONS, 279 DAYS
     Route: 048
     Dates: start: 20160725, end: 20170430
  2. ECHINACEA [Concomitant]
     Active Substance: ECHINACEA, UNSPECIFIED
  3. COCODAMOL [Concomitant]
     Active Substance: ACETAMINOPHEN\CODEINE PHOSPHATE

REACTIONS (7)
  - Anger [Recovering/Resolving]
  - Hypothyroidism [Not Recovered/Not Resolved]
  - Confusional state [Recovering/Resolving]
  - Muscle atrophy [Recovering/Resolving]
  - Condition aggravated [Unknown]
  - Hypoaesthesia oral [Unknown]
  - Prolapse [Unknown]
